FAERS Safety Report 8074339-5 (Version None)
Quarter: 2012Q1

REPORT INFORMATION
  Report Type: 
  Country: None (occurrence: None)
  Receive Date: 20120126
  Receipt Date: 20120123
  Transmission Date: 20120608
  Serious: Yes (Death)
  Sender: FDA-Public Use
  Company Number: US-CELGENEUS-163-21880-12012316

PATIENT
  Sex: Female

DRUGS (9)
  1. REVLIMID [Suspect]
     Dosage: 25 MILLIGRAM
     Route: 048
     Dates: start: 20111118
  2. TRAMADOL HCL [Concomitant]
     Route: 065
  3. LISINOPRIL [Concomitant]
     Route: 065
  4. DEXAMETHASONE [Concomitant]
     Route: 065
  5. OXYCODONE HCL [Concomitant]
     Route: 065
  6. ONDANSETRON HCL [Concomitant]
     Route: 065
  7. OMEPRAZOLE [Concomitant]
     Route: 065
  8. DETROL LA [Concomitant]
     Route: 065
  9. ROLAIDS [Concomitant]
     Route: 065

REACTIONS (1)
  - DEATH [None]
